FAERS Safety Report 6096962-X (Version None)
Quarter: 2009Q1

REPORT INFORMATION
  Report Type: 
  Country: None (occurrence: None)
  Receive Date: 20090225
  Receipt Date: 20090225
  Transmission Date: 20090719
  Serious: Yes (Hospitalization)
  Sender: FDA-Public Use
  Company Number: None

PATIENT
  Age: 80 Year
  Sex: Female
  Weight: 86.1834 kg

DRUGS (7)
  1. BRIMONIDINE TARTRATE [Suspect]
     Indication: GLAUCOMA
     Dosage: ONE DROP EACH EYE 3 TIMES DAILY 031
     Route: 047
     Dates: start: 20080801, end: 20090105
  2. BRIMONIDINE TARTRATE [Suspect]
     Indication: MACULAR DEGENERATION
     Dosage: ONE DROP EACH EYE 3 TIMES DAILY 031
     Route: 047
     Dates: start: 20080801, end: 20090105
  3. PLAVIX [Concomitant]
  4. LIPITOR [Concomitant]
  5. POTASSIUM CHLORIDE [Concomitant]
  6. ASPIRIN [Concomitant]
  7. LUTEIN [Concomitant]

REACTIONS (4)
  - DEPRESSION [None]
  - DIZZINESS [None]
  - FATIGUE [None]
  - SOMNOLENCE [None]
